FAERS Safety Report 8228261-1 (Version None)
Quarter: 2012Q1

REPORT INFORMATION
  Report Type: 
  Country: None (occurrence: None)
  Receive Date: 20120322
  Receipt Date: 20111027
  Transmission Date: 20120608
  Serious: No
  Sender: FDA-Public Use
  Company Number: US-BRISTOL-MYERS SQUIBB COMPANY-16201725

PATIENT
  Age: 70 Year
  Sex: Female
  Weight: 100 kg

DRUGS (4)
  1. ERBITUX [Suspect]
     Dosage: LAST DOSE WAS 19OCT2011
     Dates: start: 20100101
  2. SYNTHROID [Concomitant]
  3. BENICAR [Concomitant]
  4. LIPITOR [Concomitant]

REACTIONS (6)
  - LOCALISED INFECTION [None]
  - RASH [None]
  - HYPOTENSION [None]
  - DRY SKIN [None]
  - WEIGHT INCREASED [None]
  - GROWTH OF EYELASHES [None]
